FAERS Safety Report 5766623-2 (Version None)
Quarter: 2008Q2

REPORT INFORMATION
  Report Type: 
  Country: None (occurrence: None)
  Receive Date: 20080609
  Receipt Date: 20080529
  Transmission Date: 20081010
  Serious: Yes (Life-Threatening, Hospitalization, Other)
  Sender: FDA-Public Use
  Company Number: 163-21880-07091165

PATIENT
  Age: 74 Year
  Sex: Male

DRUGS (2)
  1. REVLIMID [Suspect]
     Indication: MULTIPLE MYELOMA
     Dosage: 15 MG, 1 IN 1 D, ORAL
     Route: 048
     Dates: start: 20070606, end: 20070915
  2. EPOGEN [Concomitant]

REACTIONS (4)
  - ABDOMINAL PAIN UPPER [None]
  - DEEP VEIN THROMBOSIS [None]
  - GASTRIC ULCER HAEMORRHAGE [None]
  - INTESTINAL OBSTRUCTION [None]
